FAERS Safety Report 8050605-4 (Version None)
Quarter: 2012Q1

REPORT INFORMATION
  Report Type: 
  Country: None (occurrence: None)
  Receive Date: 20120117
  Receipt Date: 20120105
  Transmission Date: 20120608
  Serious: Yes (Other)
  Sender: FDA-Public Use
  Company Number: US-ASTRAZENECA-2012SE01140

PATIENT
  Age: 66 Year
  Sex: Female

DRUGS (42)
  1. PROZAC [Concomitant]
     Indication: DEPRESSION
  2. FLEXERIL [Concomitant]
     Indication: MUSCLE SPASMS
     Dosage: ONE TABLET THREE TIMES A DAY AS NEEDED
  3. FLEXERIL [Concomitant]
     Indication: ARTHRALGIA
     Dosage: ONE TABLET THREE TIMES A DAY AS NEEDED
  4. DOXYCYCLINE [Concomitant]
     Indication: BRONCHITIS CHRONIC
     Dosage: ONE TABLET TWICE DAILY AS NEEDED
  5. LIDODERM [Concomitant]
     Indication: MYALGIA
     Dosage: ONE PATCH FOR TWELVE HOURS AS NEEDED
  6. LOTEMAX [Concomitant]
     Indication: NECROTISING SCLERITIS
  7. PREDNISONE [Concomitant]
     Indication: NECROTISING SCLERITIS
  8. CARVEDILOL [Concomitant]
     Indication: HEART RATE ABNORMAL
  9. XANAX [Concomitant]
     Indication: INSOMNIA
  10. FLEXERIL [Concomitant]
     Indication: MYALGIA
     Dosage: ONE TABLET THREE TIMES A DAY AS NEEDED
  11. LIDODERM [Concomitant]
     Indication: MUSCLE SPASMS
     Dosage: ONE PATCH FOR TWELVE HOURS AS NEEDED
  12. POTASSIUM CHLORIDE [Concomitant]
  13. OXYGEN [Concomitant]
     Indication: CHRONIC OBSTRUCTIVE PULMONARY DISEASE
     Dosage: THREE LITRES CONSTANT
  14. IPRATROPIUM BROMIDE [Concomitant]
     Indication: CHRONIC OBSTRUCTIVE PULMONARY DISEASE
     Dosage: NEBULIZER 3-4 DAILY
     Route: 055
  15. CALCIUM VITAMIN D [Concomitant]
     Indication: OSTEOPOROSIS
     Dosage: 600 MGS/200 IU
  16. LEVOTHYROXINE SODIUM [Concomitant]
     Indication: HYPOTHYROIDISM
  17. ACETAMINOPHEN [Concomitant]
     Indication: ARTHRALGIA
     Dosage: TWO TABLETS THREE TIMES A DAY AS NEEDED
  18. LASIX [Concomitant]
     Indication: OEDEMA
  19. ADVAIR DISKUS 100/50 [Concomitant]
     Indication: CHRONIC OBSTRUCTIVE PULMONARY DISEASE
     Dosage: 500/50 ONE PUFF TWICE DAILY
  20. ACETAMINOPHEN [Concomitant]
     Indication: MYALGIA
     Dosage: TWO TABLETS THREE TIMES A DAY AS NEEDED
  21. METALAZONE [Concomitant]
     Indication: OEDEMA
     Dosage: AS DIRECTED FOR FLARE UP
  22. CLONIDINE [Concomitant]
     Indication: BLOOD PRESSURE ABNORMAL
  23. FOLIC ACID [Concomitant]
     Indication: CUSHING'S SYNDROME
  24. FOLIC ACID [Concomitant]
     Indication: NEPHROPATHY
  25. TIMOLOL MALEATE [Concomitant]
     Indication: NECROTISING SCLERITIS
  26. NEXIUM [Suspect]
     Indication: GASTROOESOPHAGEAL REFLUX DISEASE
     Route: 048
     Dates: start: 20030601
  27. MUCINEX [Concomitant]
     Indication: CHRONIC OBSTRUCTIVE PULMONARY DISEASE
  28. IRON [Concomitant]
     Indication: ANAEMIA
  29. GLYBURIDE [Concomitant]
     Indication: DIABETES MELLITUS
  30. XANAX [Concomitant]
     Indication: ANXIETY
  31. CALCITRIOL [Concomitant]
     Indication: PARATHYROID DISORDER
  32. COLACE [Concomitant]
     Indication: CONSTIPATION
  33. COLCHICINE [Concomitant]
     Indication: GOUT
  34. MAXAIR [Concomitant]
     Indication: CHRONIC OBSTRUCTIVE PULMONARY DISEASE
     Dosage: TWO PUFFS FOUR TIMES DAILY AS NEEDED
  35. LIPITOR [Concomitant]
     Indication: BLOOD CHOLESTEROL ABNORMAL
  36. VITAMIN C [Concomitant]
     Indication: ANAEMIA
  37. ACETAMINOPHEN [Concomitant]
     Indication: MUSCLE SPASMS
     Dosage: TWO TABLETS THREE TIMES A DAY AS NEEDED
  38. ZYRTEC [Concomitant]
     Indication: MULTIPLE ALLERGIES
  39. DIAMOX SRC [Concomitant]
     Indication: HEART RATE ABNORMAL
     Dosage: 250 MGS AS DIRECTED
  40. LIDODERM [Concomitant]
     Indication: ARTHRALGIA
     Dosage: ONE PATCH FOR TWELVE HOURS AS NEEDED
  41. ALLOPURINOL [Concomitant]
     Indication: GOUT
  42. FOLIC ACID [Concomitant]
     Indication: HERNIA

REACTIONS (22)
  - BLOOD PRESSURE ABNORMAL [None]
  - MULTIPLE ALLERGIES [None]
  - BRONCHITIS [None]
  - OEDEMA [None]
  - DEPRESSION [None]
  - MYALGIA [None]
  - RENAL IMPAIRMENT [None]
  - BLOOD CHOLESTEROL ABNORMAL [None]
  - HYPOTHYROIDISM [None]
  - HERNIA [None]
  - GOUT [None]
  - ANAEMIA [None]
  - CHRONIC OBSTRUCTIVE PULMONARY DISEASE [None]
  - CONSTIPATION [None]
  - HEART RATE ABNORMAL [None]
  - PARATHYROID DISORDER [None]
  - BLOOD POTASSIUM ABNORMAL [None]
  - CUSHING'S SYNDROME [None]
  - DIABETES MELLITUS [None]
  - MUSCLE SPASMS [None]
  - ARTHRITIS [None]
  - ADVERSE EVENT [None]
